FAERS Safety Report 7700629-9 (Version None)
Quarter: 2011Q3

REPORT INFORMATION
  Report Type: 
  Country: None (occurrence: None)
  Receive Date: 20110822
  Receipt Date: 20110822
  Transmission Date: 20111222
  Serious: No
  Sender: FDA-Public Use
  Company Number: None

PATIENT
  Sex: Female
  Weight: 52.163 kg

DRUGS (1)
  1. AMLODIPINE [Suspect]
     Indication: HYPERTENSION
     Dosage: 1 TABLET
     Route: 048
     Dates: start: 20090109, end: 20110726

REACTIONS (14)
  - ABNORMAL DREAMS [None]
  - GAIT DISTURBANCE [None]
  - ILL-DEFINED DISORDER [None]
  - DEPRESSION [None]
  - NIGHTMARE [None]
  - TINNITUS [None]
  - DIZZINESS [None]
  - SYNCOPE [None]
  - INITIAL INSOMNIA [None]
  - POOR QUALITY SLEEP [None]
  - NAUSEA [None]
  - FATIGUE [None]
  - CONFUSIONAL STATE [None]
  - EAR DISCOMFORT [None]
